FAERS Safety Report 5781343-6 (Version None)
Quarter: 2008Q2

REPORT INFORMATION
  Report Type: 
  Country: None (occurrence: None)
  Receive Date: 20080623
  Receipt Date: 20080616
  Transmission Date: 20081010
  Serious: Yes (Other)
  Sender: FDA-Public Use
  Company Number: US-BRISTOL-MYERS SQUIBB COMPANY-14228860

PATIENT
  Age: 57 Year
  Sex: Male

DRUGS (7)
  1. ETOPOSIDE [Suspect]
     Indication: ACUTE MYELOID LEUKAEMIA
  2. CYTARABINE [Suspect]
     Indication: ACUTE MYELOID LEUKAEMIA
  3. BUSULFAN [Suspect]
     Indication: ACUTE MYELOID LEUKAEMIA
  4. NEUPOGEN [Suspect]
     Indication: ACUTE MYELOID LEUKAEMIA
  5. DAUNORUBICIN HCL [Suspect]
     Indication: ACUTE MYELOID LEUKAEMIA
  6. FLUDARABINE [Suspect]
     Indication: ACUTE MYELOID LEUKAEMIA
  7. MELPHALAN [Suspect]
     Indication: ACUTE MYELOID LEUKAEMIA

REACTIONS (2)
  - CYTOGENETIC ABNORMALITY [None]
  - MYELODYSPLASTIC SYNDROME [None]
